FAERS Safety Report 16907046 (Version 1)
Quarter: 2019Q4

REPORT INFORMATION
  Report Type: Spontaneous
  Country: FR (occurrence: FR)
  Receive Date: 20191011
  Receipt Date: 20191011
  Transmission Date: 20200122
  Serious: Yes (Hospitalization, Congenital Anomaly)
  Sender: FDA-Public Use
  Company Number: FR-TEVA-2019-FR-1120026

PATIENT
  Age: 59 Year
  Sex: Male
  Weight: 71.5 kg

DRUGS (3)
  1. SOLIRIS [Suspect]
     Active Substance: ECULIZUMAB
     Indication: GLOMERULONEPHRITIS PROLIFERATIVE
     Dosage: 1200 MG PER 21 DAYS
     Route: 042
     Dates: start: 20190715
  2. AZITHROMYCINE ANHYDRE [Suspect]
     Active Substance: AZITHROMYCIN ANHYDROUS
     Indication: LARGE INTESTINE INFECTION
     Dosage: 500 MG, 1 DAY
     Route: 048
     Dates: start: 20190828, end: 20190901
  3. CELLCEPT [Suspect]
     Active Substance: MYCOPHENOLATE MOFETIL\MYCOPHENOLATE MOFETIL HYDROCHLORIDE
     Indication: GLOMERULONEPHRITIS PROLIFERATIVE
     Dosage: 2 GRAM PER 24 HOURS
     Route: 042
     Dates: start: 20190703

REACTIONS (1)
  - Aplasia [Recovered/Resolved]

NARRATIVE: CASE EVENT DATE: 20190910
